FAERS Safety Report 15554176 (Version 1)
Quarter: 2018Q4

REPORT INFORMATION
  Report Type: Spontaneous
  Country: US (occurrence: US)
  Receive Date: 20181025
  Receipt Date: 20181025
  Transmission Date: 20190205
  Serious: Yes (Disabling)
  Sender: FDA-Public Use
  Company Number: None

PATIENT
  Age: 64 Year
  Sex: Female
  Weight: 74.25 kg

DRUGS (1)
  1. AIMOVIG [Suspect]
     Active Substance: ERENUMAB-AOOE
     Indication: MIGRAINE
     Dosage: ?          OTHER ROUTE:SUBQ INJECTION?
     Route: 058

REACTIONS (7)
  - Fatigue [None]
  - Bedridden [None]
  - Dizziness [None]
  - Migraine [None]
  - Asthenia [None]
  - Heart rate decreased [None]
  - Condition aggravated [None]

NARRATIVE: CASE EVENT DATE: 20180820
